FAERS Safety Report 13145000 (Version 1)
Quarter: 2017Q1

REPORT INFORMATION
  Report Type: Spontaneous
  Country: US (occurrence: US)
  Receive Date: 20170124
  Receipt Date: 20170124
  Transmission Date: 20170428
  Serious: No
  Sender: FDA-Public Use
  Company Number: US-B.I. PHARMACEUTICALS,INC./RIDGEFIELD-2017-BI-002858

PATIENT
  Age: 78 Year
  Sex: Male

DRUGS (1)
  1. COMBIVENT [Suspect]
     Active Substance: ALBUTEROL SULFATE\IPRATROPIUM BROMIDE
     Indication: RESPIRATORY DISORDER
     Dosage: STRENGTH: 20 MCG / 100 MCG; UNIT DOSE: 1 PUFF (20 MCG / 100 MCG); DAILY DOSE: 3 PUFFS (60 MCG/ 300 M
     Route: 065
     Dates: start: 201611

REACTIONS (1)
  - Blood glucose increased [Not Recovered/Not Resolved]
